FAERS Safety Report 5132146-7 (Version None)
Quarter: 2006Q4

REPORT INFORMATION
  Report Type: 
  Country: None (occurrence: None)
  Receive Date: 20061017
  Receipt Date: 20061005
  Transmission Date: 20070319
  Serious: Yes (Hospitalization)
  Sender: FDA-Public Use
  Company Number: RB-4118-2006

PATIENT
  Age: 47 Year
  Sex: Female
  Weight: 120.2032 kg

DRUGS (11)
  1. SUBOXONE [Suspect]
     Indication: DRUG DEPENDENCE
     Dosage: 4MG TID SUBLINGUAL
     Route: 060
     Dates: start: 20060919
  2. ARTHROTEC [Concomitant]
  3. EFFEXOR [Concomitant]
  4. MAXZIDE [Concomitant]
  5. LEXAPRO [Concomitant]
  6. TOPAMAX [Concomitant]
  7. LAMICTAL [Concomitant]
  8. BENADRYL [Concomitant]
  9. TRAMADOL HCL [Concomitant]
  10. ALLEGRA [Concomitant]
  11. LASIX [Concomitant]

REACTIONS (6)
  - CELLULITIS [None]
  - DRUG INTERACTION [None]
  - FLUID RETENTION [None]
  - OEDEMA PERIPHERAL [None]
  - PAIN IN EXTREMITY [None]
  - PRURITUS [None]
